FAERS Safety Report 24273552 (Version 1)
Quarter: 2024Q3

REPORT INFORMATION
  Report Type: Spontaneous
  Country: US (occurrence: US)
  Receive Date: 20240902
  Receipt Date: 20240902
  Transmission Date: 20241016
  Serious: Yes (Disabling, Other)
  Sender: ABBVIE
  Company Number: US-ABBVIE-5897278

PATIENT
  Age: 64 Year
  Sex: Male

DRUGS (23)
  1. HUMIRA [Suspect]
     Active Substance: ADALIMUMAB
     Indication: Inflammation
     Route: 058
     Dates: start: 202101, end: 20211018
  2. HUMIRA [Suspect]
     Active Substance: ADALIMUMAB
     Indication: Rheumatoid arthritis
  3. PREDNISONE [Suspect]
     Active Substance: PREDNISONE
     Indication: Rheumatoid arthritis
     Dosage: 3 TABLETS
     Route: 048
  4. VALCYTE [Concomitant]
     Active Substance: VALGANCICLOVIR HYDROCHLORIDE
     Indication: Product used for unknown indication
  5. DUREZOL [Concomitant]
     Active Substance: DIFLUPREDNATE
     Indication: Product used for unknown indication
     Dosage: 0.05 % EYE DROPS INSTILL 1 DROP BY OPHTHALMIC ROUTE EVERY HOUR INTO AFFECTED EYE(S) ;START 24HRS ...
     Route: 047
     Dates: start: 20211020
  6. AMLODIPINE [Concomitant]
     Active Substance: AMLODIPINE BESYLATE
     Indication: Product used for unknown indication
     Dosage: 2.5MG TAKE 1 TABLET BY ORAL ROUTE EVERY DAY
     Route: 048
  7. ATORVASTATIN [Concomitant]
     Active Substance: ATORVASTATIN
     Indication: Product used for unknown indication
     Dosage: STRENGTH 10 MG TAKE 1 TABLET BY ORAL ROUTE EVERY DAY
     Route: 048
  8. HYDROCODONE BITARTRATE [Concomitant]
     Active Substance: HYDROCODONE BITARTRATE
     Indication: Product used for unknown indication
     Dosage: STRENGTH 10 MG  EXTENDED RELESE 12 HOURS
     Route: 048
  9. AMBIEN [Concomitant]
     Active Substance: ZOLPIDEM TARTRATE
     Indication: Product used for unknown indication
     Dosage: STRENGTH 5 MG TAKE 0.5 TABLET EVERY DAY AT BEDTIME
     Route: 048
  10. FAMOTIDINE [Concomitant]
     Active Substance: FAMOTIDINE
     Indication: Product used for unknown indication
     Dosage: STRENGTH 10 MG AS NEEDED
     Route: 048
  11. NEXIUM [Concomitant]
     Active Substance: ESOMEPRAZOLE MAGNESIUM
     Indication: Product used for unknown indication
     Dosage: STRENGTH 20 MG TAKE 1 CAPSULE BY ORAL ROUTE EVERY DAY ATLEAST 1 HOUR BEFORE A MEAL SWALLOWING WHOLE.
     Route: 048
  12. SUMATRIPTAN [Concomitant]
     Active Substance: SUMATRIPTAN\SUMATRIPTAN SUCCINATE
     Indication: Product used for unknown indication
     Dosage: STRENGTH 5 MG/ACTUATION SPRAY 1 SPRAY BY INTRANASAL ROUTE ONCE; IF  HEADACHE RETURNS, DOSE MAY BE...
     Route: 045
  13. FLUCELVAX QUADRIVALENT NOS [Concomitant]
     Active Substance: INFLUENZA A VIRUS A/BRISBANE/10/2010 (H1N1) ANTIGEN (MDCK CELL DERIVED, PROPIOLACTONE INACTIVATED)\I
     Indication: Product used for unknown indication
     Dosage: 60 MCG (14 MCG X 4)/ 0.5 ML INTRAMUSCULAR SUSPENSION
     Route: 030
     Dates: start: 2020, end: 2021
  14. HYDROXYCHLOROQUINE [Concomitant]
     Active Substance: HYDROXYCHLOROQUINE
     Indication: Arthritis
  15. ATENOLOL [Concomitant]
     Active Substance: ATENOLOL
     Indication: Product used for unknown indication
     Dosage: STRENGTH 2.5 MG
     Route: 048
  16. TAMSULOSIN [Concomitant]
     Active Substance: TAMSULOSIN
     Indication: Product used for unknown indication
     Dosage: STRENGTH 0.4 MG TAKE 1 CAPSULE BY ORAL ROUTE EVERY DAY 1/2 HOUR FOLLOWING THE SAME MEAL EACH DAY
     Route: 048
  17. TRAZODONE [Concomitant]
     Active Substance: TRAZODONE HYDROCHLORIDE
     Indication: Product used for unknown indication
     Dosage: TRAZODONE 50 MG TAKE 1 TABLET BY ORAL ROUTE EVERY DAY AT BEDTIME
     Route: 048
  18. AMITRIPTYLINE [Concomitant]
     Active Substance: AMITRIPTYLINE
     Indication: Product used for unknown indication
     Dosage: STRENGTH 10 MG TAKE 1 TABLET BY ORAL ROUTE EVERY DAY AT BEDTIME
     Route: 048
  19. CREON [Concomitant]
     Active Substance: PANCRELIPASE AMYLASE\PANCRELIPASE LIPASE\PANCRELIPASE PROTEASE
     Indication: Product used for unknown indication
     Dosage: 12,000-38,000-60,000 UNIT ( 2 CAPSULE BY ORAL ROUTE 3 TIMES EVERY DAY WITH MEALS AND 1 CAPSULE WI...
     Route: 048
  20. AKTEN [Concomitant]
     Active Substance: LIDOCAINE HYDROCHLORIDE
     Indication: Product used for unknown indication
  21. PROPARACAINE [Concomitant]
     Active Substance: PROPARACAINE
     Indication: Product used for unknown indication
  22. VALACYCLOVIR [Concomitant]
     Active Substance: VALACYCLOVIR HYDROCHLORIDE
     Indication: Product used for unknown indication
     Dosage: TIME INTERVAL: 0.33333333 DAYS
     Dates: start: 20211029, end: 20211112
  23. VALACYCLOVIR [Concomitant]
     Active Substance: VALACYCLOVIR HYDROCHLORIDE
     Indication: Product used for unknown indication

REACTIONS (23)
  - Wrist fracture [Not Recovered/Not Resolved]
  - Blindness unilateral [Not Recovered/Not Resolved]
  - Vision blurred [Unknown]
  - Fear [Unknown]
  - Vitreous floaters [Unknown]
  - Blindness [Not Recovered/Not Resolved]
  - Gait disturbance [Unknown]
  - Varicella [Unknown]
  - Uveitis [Unknown]
  - Retinal detachment [Unknown]
  - Fall [Unknown]
  - Eye pain [Recovered/Resolved]
  - Headache [Unknown]
  - Dermatochalasis [Unknown]
  - Immunosuppression [Unknown]
  - Eye pain [Unknown]
  - Corneal oedema [Unknown]
  - Concussion [Unknown]
  - Acute kidney injury [Unknown]
  - Multiple sclerosis [Unknown]
  - Optic neuritis [Unknown]
  - Demyelination [Unknown]
  - Balance disorder [Unknown]

NARRATIVE: CASE EVENT DATE: 20211006
